FAERS Safety Report 5917466-8 (Version None)
Quarter: 2008Q4

REPORT INFORMATION
  Report Type: 
  Country: None (occurrence: None)
  Receive Date: 20081009
  Receipt Date: 20081009
  Transmission Date: 20090506
  Serious: Yes (Hospitalization, Other)
  Sender: FDA-Public Use
  Company Number: None

PATIENT
  Age: 49 Year
  Sex: Female
  Weight: 68.0396 kg

DRUGS (2)
  1. AVELOX [Suspect]
     Indication: SINUSITIS
     Dosage: 400 MG TWICE A DAY PO
     Route: 048
     Dates: start: 20071123, end: 20071223
  2. CIPRO XR [Suspect]
     Indication: SKIN ULCER
     Dosage: 1000MG XL ONCE A DAY PO
     Route: 048
     Dates: start: 20080211, end: 20080211

REACTIONS (22)
  - ARTHRALGIA [None]
  - BEDRIDDEN [None]
  - BLOOD PRESSURE INCREASED [None]
  - BURNING SENSATION [None]
  - CONDITION AGGRAVATED [None]
  - ERYTHEMA [None]
  - FACIAL PAIN [None]
  - FEELING ABNORMAL [None]
  - GAIT DISTURBANCE [None]
  - GLOSSODYNIA [None]
  - HEADACHE [None]
  - INFECTION [None]
  - LIVEDO RETICULARIS [None]
  - MALAISE [None]
  - MYALGIA [None]
  - NAUSEA [None]
  - NEURALGIA [None]
  - PALPITATIONS [None]
  - RASH PRURITIC [None]
  - SKIN ULCER [None]
  - TONGUE DISCOLOURATION [None]
  - VISION BLURRED [None]
